FAERS Safety Report 19866313 (Version 7)
Quarter: 2022Q1

REPORT INFORMATION
  Report Type: Report from Study
  Country: CA (occurrence: CA)
  Receive Date: 20210921
  Receipt Date: 20220328
  Transmission Date: 20220424
  Serious: Yes (Hospitalization, Other)
  Sender: FDA-Public Use
  Company Number: CA-OTSUKA-2021_032501

PATIENT
  Age: 75 Year
  Sex: Male

DRUGS (2)
  1. CEDAZURIDINE\DECITABINE [Suspect]
     Active Substance: CEDAZURIDINE\DECITABINE
     Indication: Myelodysplastic syndrome
     Dosage: 1 TABLET FOR 5 DAYS
     Route: 065
     Dates: start: 20210819
  2. CEDAZURIDINE\DECITABINE [Suspect]
     Active Substance: CEDAZURIDINE\DECITABINE
     Dosage: 1 TABLET FOR 4 DAYS
     Route: 065

REACTIONS (12)
  - White blood cell count abnormal [Unknown]
  - Haemoglobin abnormal [Unknown]
  - Body temperature increased [Unknown]
  - Transfusion [Unknown]
  - Full blood count abnormal [Unknown]
  - Pneumonia [Unknown]
  - Abscess [Not Recovered/Not Resolved]
  - Blood test abnormal [Unknown]
  - Toxicity to various agents [Unknown]
  - Constipation [Unknown]
  - Stomatitis [Recovered/Resolved]
  - Product use issue [Unknown]

NARRATIVE: CASE EVENT DATE: 20220109
